FAERS Safety Report 9665258 (Version 1)
Quarter: 2013Q4

REPORT INFORMATION
  Report Type: Spontaneous
  Country: GB (occurrence: GB)
  Receive Date: 20131101
  Receipt Date: 20131101
  Transmission Date: 20140711
  Serious: Yes (Hospitalization)
  Sender: FDA-Public Use
  Company Number: CHPA2013GB016543

PATIENT
  Sex: Female

DRUGS (1)
  1. NICOTINELL COATED GUM 2 MG MINT [Suspect]
     Dosage: 2 MG, UNK

REACTIONS (2)
  - Cerebrovascular accident [Unknown]
  - Incorrect drug administration duration [Unknown]
